FAERS Safety Report 8064389 (Version 3)
Quarter: 2014Q2

REPORT INFORMATION
  Report Type: Spontaneous
  Country: CN (occurrence: CN)
  Receive Date: 20110802
  Receipt Date: 20140407
  Transmission Date: 20141212
  Serious: Yes (Other)
  Sender: FDA-Public Use
  Company Number: CN-JNJFOC-20110712329

PATIENT
  Age: 32 Year
  Sex: Female
  Weight: 60 kg

DRUGS (3)
  1. RISPERDAL [Suspect]
     Indication: SCHIZOPHRENIA
     Route: 048
     Dates: end: 20110718
  2. RISPERDAL [Suspect]
     Indication: SCHIZOPHRENIA
     Route: 048
     Dates: start: 20110416
  3. CHINESE TRADITIONAL MEDICINE [Concomitant]
     Indication: SCHIZOPHRENIA
     Route: 048

REACTIONS (2)
  - Suicidal ideation [Not Recovered/Not Resolved]
  - Asthenia [Not Recovered/Not Resolved]
